FAERS Safety Report 8472665-9 (Version None)
Quarter: 2012Q2

REPORT INFORMATION
  Report Type: 
  Country: None (occurrence: None)
  Receive Date: 20120622
  Receipt Date: 20120622
  Transmission Date: 20120825
  Serious: Yes (Hospitalization)
  Sender: FDA-Public Use
  Company Number: None

PATIENT
  Age: 67 Year
  Sex: Male
  Weight: 53.1 kg

DRUGS (1)
  1. ACETAMINOPHEN [Suspect]
     Dosage: 650 MG QID PO
     Route: 048
     Dates: start: 20110806

REACTIONS (9)
  - HEADACHE [None]
  - INTERNATIONAL NORMALISED RATIO INCREASED [None]
  - ASTHENIA [None]
  - OVERDOSE [None]
  - BACK PAIN [None]
  - NECK PAIN [None]
  - LIVER INJURY [None]
  - ALANINE AMINOTRANSFERASE INCREASED [None]
  - ASPARTATE AMINOTRANSFERASE INCREASED [None]
